FAERS Safety Report 7230196-8 (Version None)
Quarter: 2011Q1

REPORT INFORMATION
  Report Type: 
  Country: None (occurrence: None)
  Receive Date: 20110118
  Receipt Date: 20110110
  Transmission Date: 20110831
  Serious: Yes (Other)
  Sender: FDA-Public Use
  Company Number: US-ALLERGAN-1100299US

PATIENT
  Age: 59 Year
  Sex: Female

DRUGS (2)
  1. LATISSE [Suspect]
     Indication: GROWTH OF EYELASHES
     Dosage: 1 GTT, QHS
     Route: 061
     Dates: start: 20101001, end: 20101106
  2. LATISSE [Suspect]

REACTIONS (3)
  - RETINAL DETACHMENT [None]
  - VISUAL FIELD DEFECT [None]
  - WRONG TECHNIQUE IN DRUG USAGE PROCESS [None]
